FAERS Safety Report 11129162 (Version 2)
Quarter: 2015Q3

REPORT INFORMATION
  Report Type: Spontaneous
  Country: US (occurrence: US)
  Receive Date: 20150521
  Receipt Date: 20150901
  Transmission Date: 20151125
  Serious: No
  Sender: FDA-Public Use
  Company Number: US-GLAXOSMITHKLINE-US2015068459

PATIENT
  Age: 42 Year
  Sex: Male

DRUGS (3)
  1. RELAFEN [Concomitant]
     Active Substance: NABUMETONE
  2. FLONASE [Concomitant]
     Active Substance: FLUTICASONE PROPIONATE
  3. ADVAIR DISKUS [Suspect]
     Active Substance: FLUTICASONE PROPIONATE\SALMETEROL XINAFOATE
     Indication: ASTHMA
     Dosage: 1 PUFF(S), BID
     Route: 055
     Dates: start: 201211

REACTIONS (5)
  - Product quality issue [Unknown]
  - Dysphonia [Recovered/Resolved]
  - Dyspnoea [Not Recovered/Not Resolved]
  - Product taste abnormal [Recovered/Resolved]
  - Coating in mouth [Recovered/Resolved]

NARRATIVE: CASE EVENT DATE: 201211
